FAERS Safety Report 10428356 (Version 2)
Quarter: 2014Q3

REPORT INFORMATION
  Report Type: Spontaneous
  Country: US (occurrence: US)
  Receive Date: 20140903
  Receipt Date: 20140903
  Transmission Date: 20150326
  Serious: Yes (Hospitalization)
  Sender: FDA-Public Use
  Company Number: US-GLAXOSMITHKLINE-A0709952A

PATIENT
  Sex: Female
  Weight: 104.5 kg

DRUGS (7)
  1. STARLIX [Concomitant]
     Active Substance: NATEGLINIDE
     Dates: start: 20050502, end: 20050608
  2. AVANDIA [Suspect]
     Active Substance: ROSIGLITAZONE MALEATE
     Indication: TYPE 2 DIABETES MELLITUS
     Route: 048
     Dates: start: 2003, end: 20050412
  3. METFORMIN [Concomitant]
     Active Substance: METFORMIN HYDROCHLORIDE
     Dates: start: 200003, end: 20060403
  4. AVANDAMET [Suspect]
     Active Substance: METFORMIN HYDROCHLORIDE\ROSIGLITAZONE MALEATE
     Indication: TYPE 2 DIABETES MELLITUS
     Route: 048
     Dates: start: 2003, end: 2006
  5. ACTOS [Concomitant]
     Active Substance: PIOGLITAZONE HYDROCHLORIDE
     Dates: start: 20050910, end: 20060403
  6. GLUCOPHAGE [Concomitant]
     Active Substance: METFORMIN HYDROCHLORIDE
     Dates: start: 20030327, end: 20040317
  7. DIABETA [Concomitant]
     Active Substance: GLYBURIDE
     Dates: start: 20000202, end: 20061007

REACTIONS (3)
  - Heart rate irregular [Unknown]
  - Myocardial infarction [Not Recovered/Not Resolved]
  - Cardiovascular disorder [Unknown]
